FAERS Safety Report 8936058 (Version 1)
Quarter: 2012Q4

REPORT INFORMATION
  Report Type: 
  Country: US (occurrence: US)
  Receive Date: 20121130
  Receipt Date: 20121130
  Transmission Date: 20130627
  Serious: No
  Sender: FDA-Public Use
  Company Number: US-ABBOTT-12P-163-0979516-00

PATIENT
  Age: 8 Year
  Sex: Female
  Weight: 23.15 kg

DRUGS (4)
  1. ANDROGEL [Suspect]
     Indication: EXPOSURE VIA FATHER
     Dosage: Unknown dose
     Route: 062
  2. ZYRTEC [Concomitant]
     Indication: HYPERSENSITIVITY
  3. NASONEX [Concomitant]
     Indication: HYPERSENSITIVITY
  4. FLOVENT [Concomitant]
     Indication: HYPERSENSITIVITY
     Route: 055

REACTIONS (3)
  - Acne [Not Recovered/Not Resolved]
  - Acne [Not Recovered/Not Resolved]
  - Accidental exposure to product [Not Recovered/Not Resolved]
